FAERS Safety Report 25044047 (Version 1)
Quarter: 2025Q1

REPORT INFORMATION
  Report Type: Report from Study
  Country: CA (occurrence: CA)
  Receive Date: 20250306
  Receipt Date: 20250306
  Transmission Date: 20250409
  Serious: Yes (Hospitalization)
  Sender: NOVARTIS
  Company Number: CA-002147023-NVSC2024CA156661

PATIENT
  Age: 47 Year
  Sex: Female

DRUGS (3)
  1. KISQALI [Suspect]
     Active Substance: RIBOCICLIB
     Indication: Breast cancer metastatic
     Route: 048
     Dates: start: 20240724, end: 20250224
  2. FEMARA [Suspect]
     Active Substance: LETROZOLE
     Indication: Breast cancer metastatic
     Route: 048
     Dates: start: 20240724
  3. CALCIUM [Concomitant]
     Active Substance: CALCIUM
     Indication: Product used for unknown indication
     Route: 065
     Dates: start: 20240724

REACTIONS (12)
  - Influenza [Unknown]
  - Pyrexia [Unknown]
  - Nausea [Unknown]
  - Abdominal pain upper [Unknown]
  - Dizziness [Unknown]
  - Electric shock [Unknown]
  - Bowel movement irregularity [Unknown]
  - Visual impairment [Unknown]
  - Cough [Not Recovered/Not Resolved]
  - Apnoea test abnormal [Unknown]
  - Restlessness [Unknown]
  - Discomfort [Unknown]

NARRATIVE: CASE EVENT DATE: 20240726
